FAERS Safety Report 4539314-3 (Version None)
Quarter: 2004Q4

REPORT INFORMATION
  Report Type: 
  Country: None (occurrence: None)
  Receive Date: 20041222
  Receipt Date: 20041209
  Transmission Date: 20050328
  Serious: Yes (Other)
  Sender: FDA-Public Use
  Company Number: 2004114149

PATIENT
  Age: 75 Year
  Sex: Female

DRUGS (3)
  1. PEGVISOMANT POWDER, STERILE (PEGVISOMANT) [Suspect]
     Indication: ACROMEGALY
     Dosage: 10 MG (10 MG, 1 D), SUBCUTANEOUS
     Route: 058
     Dates: start: 20031127
  2. OCTREOTIDE ACETATE (ACREOTIDE ACETATE) [Concomitant]
  3. BROMOCRIPTINE MESYLATE [Concomitant]

REACTIONS (2)
  - NEOPLASM PROGRESSION [None]
  - PITUITARY TUMOUR BENIGN [None]
